FAERS Safety Report 8462711 (Version 3)
Quarter: 2013Q1

REPORT INFORMATION
  Report Type: Spontaneous
  Country: RS (occurrence: RS)
  Receive Date: 20120316
  Receipt Date: 20130204
  Transmission Date: 20140127
  Serious: Yes (Death, Other)
  Sender: FDA-Public Use
  Company Number: RS-JNJFOC-20120304583

PATIENT
  Sex: Female
  Weight: 51.6 kg

DRUGS (7)
  1. REMICADE [Suspect]
     Indication: INFLAMMATORY BOWEL DISEASE
     Dosage: 0, 2, 6 AND THEN EVERY 8 WEEKS DURING 12+/- 4 MONTH.
     Route: 042
     Dates: start: 201004
  2. CORTICOSTEROIDS [Concomitant]
     Route: 042
  3. MESALAZINE [Concomitant]
     Route: 048
  4. MESALAZINE [Concomitant]
     Route: 061
  5. VANCOMYCIN [Concomitant]
     Route: 065
  6. METRONIDAZOLE [Concomitant]
     Route: 065
  7. HEPARIN [Concomitant]
     Route: 065

REACTIONS (2)
  - Embolism [Fatal]
  - Cor pulmonale acute [Unknown]
